FAERS Safety Report 25318087 (Version 1)
Quarter: 2025Q2

REPORT INFORMATION
  Report Type: Spontaneous
  Country: US (occurrence: US)
  Receive Date: 20250515
  Receipt Date: 20250515
  Transmission Date: 20250716
  Serious: Yes (Other)
  Sender: INNOGENIX, LLC
  Company Number: US-Innogenix, LLC-2176706

PATIENT
  Sex: Female

DRUGS (2)
  1. PROPRANOLOL HYDROCHLORIDE [Suspect]
     Active Substance: PROPRANOLOL HYDROCHLORIDE
     Indication: Seizure
  2. LEVETIRACETAM [Suspect]
     Active Substance: LEVETIRACETAM

REACTIONS (3)
  - Hallucination [Unknown]
  - Product use in unapproved indication [Unknown]
  - Brain fog [Unknown]
